FAERS Safety Report 7207943-4 (Version None)
Quarter: 2011Q1

REPORT INFORMATION
  Report Type: 
  Country: None (occurrence: None)
  Receive Date: 20110104
  Receipt Date: 20101227
  Transmission Date: 20110831
  Serious: Yes (Hospitalization)
  Sender: FDA-Public Use
  Company Number: US-ASTELLAS-2010US005277

PATIENT

DRUGS (2)
  1. AMEVIVE [Suspect]
     Dosage: 15 MG, UNKNOWN/D
     Route: 058
     Dates: start: 20101227
  2. AMEVIVE [Suspect]
     Indication: RENAL TRANSPLANT
     Dosage: 7.5 MG, UNKNOWN/D
     Route: 042
     Dates: start: 20101220, end: 20101222

REACTIONS (2)
  - FACE OEDEMA [None]
  - VENOUS THROMBOSIS LIMB [None]
